FAERS Safety Report 4486639-6 (Version None)
Quarter: 2004Q4

REPORT INFORMATION
  Report Type: 
  Country: None (occurrence: None)
  Receive Date: 20041018
  Receipt Date: 20041006
  Transmission Date: 20050328
  Serious: Yes (Hospitalization, Disabling)
  Sender: FDA-Public Use
  Company Number: 3082B1-307

PATIENT
  Age: 20 Year
  Sex: Male
  Weight: 80 kg

DRUGS (1)
  1. REFACTO [Suspect]
     Indication: FACTOR VIII DEFICIENCY
     Dosage: 2000 IU, INTRAVENOUS
     Route: 042
     Dates: start: 20030203

REACTIONS (3)
  - FEELING ABNORMAL [None]
  - HAEMATEMESIS [None]
  - NAUSEA [None]
